FAERS Safety Report 24440888 (Version 1)
Quarter: 2024Q4

REPORT INFORMATION
  Report Type: Spontaneous
  Country: US (occurrence: US)
  Receive Date: 20241016
  Receipt Date: 20241016
  Transmission Date: 20250115
  Serious: Yes (Hospitalization)
  Sender: ROCHE
  Company Number: US-ROCHE-10000105894

PATIENT
  Sex: Female

DRUGS (3)
  1. XOLAIR PFS [Suspect]
     Active Substance: OMALIZUMAB
     Indication: Asthma
     Dosage: STRENGTH: 150MG/ML, 75MG/0.5ML, ONGOING
     Route: 058
     Dates: start: 202204
  2. XOLAIR PFS [Suspect]
     Active Substance: OMALIZUMAB
  3. gelsyn [Concomitant]
     Indication: Osteoarthritis
     Route: 014

REACTIONS (1)
  - Goitre [Unknown]
